FAERS Safety Report 16917078 (Version 4)
Quarter: 2019Q4

REPORT INFORMATION
  Report Type: Spontaneous
  Country: SI (occurrence: SI)
  Receive Date: 20191015
  Receipt Date: 20191128
  Transmission Date: 20200122
  Serious: Yes (Death, Other)
  Sender: FDA-Public Use
  Company Number: SI-ASTELLAS-2019US040664

PATIENT
  Age: 9 Month
  Sex: Female

DRUGS (21)
  1. MYCAMINE [Suspect]
     Active Substance: MICAFUNGIN SODIUM
     Indication: PROPHYLAXIS
     Route: 051
     Dates: start: 20190917, end: 20190927
  2. ARA-C [Concomitant]
     Active Substance: CYTARABINE
     Indication: CHEMOTHERAPY
     Route: 037
     Dates: start: 20190907
  3. IDARUBICIN [Concomitant]
     Active Substance: IDARUBICIN
     Indication: CHEMOTHERAPY
     Route: 065
     Dates: start: 20190909, end: 20190913
  4. PARACETAMOL [Concomitant]
     Active Substance: ACETAMINOPHEN
     Route: 042
     Dates: start: 20190918
  5. PRONISON [Concomitant]
     Active Substance: PREDNISONE
     Indication: CHEMOTHERAPY
     Route: 037
  6. ZOFRAN [Concomitant]
     Active Substance: ONDANSETRON HYDROCHLORIDE
     Indication: SUPPORTIVE CARE
     Route: 042
     Dates: start: 20190907, end: 20190908
  7. ALOPURINOL [Concomitant]
     Active Substance: ALLOPURINOL
     Indication: SUPPORTIVE CARE
     Dosage: 3 DF (3X0.5 TBL), UNKNOWN FREQ.
     Route: 065
     Dates: start: 20190907, end: 20190910
  8. TEICOPLANIN [Concomitant]
     Active Substance: TEICOPLANIN
     Indication: ANTIBIOTIC THERAPY
     Dosage: 80 MG, ONCE DAILY (80 MG/ 24H)
     Route: 042
     Dates: start: 20190915
  9. TMP-SMX [Concomitant]
     Active Substance: SULFAMETHOXAZOLE\TRIMETHOPRIM
     Indication: ANTIBIOTIC THERAPY
     Dosage: 120 MG, TWICE DAILY (120 MG/12H)
     Route: 048
     Dates: start: 20190908
  10. ETOPOSID [Concomitant]
     Active Substance: ETOPOSIDE
     Indication: CHEMOTHERAPY
     Route: 065
     Dates: start: 20190912, end: 20190914
  11. GLYCOPHOS [Concomitant]
     Active Substance: SODIUM GLYCEROPHOSPHATE ANHYDROUS
     Indication: SUPPORTIVE CARE
     Route: 065
     Dates: start: 20190916, end: 20190917
  12. PARACETAMOL [Concomitant]
     Active Substance: ACETAMINOPHEN
     Indication: SUPPORTIVE CARE
     Route: 048
     Dates: start: 20190918
  13. PIPERACILLIN/TAZOBACTAM [Concomitant]
     Active Substance: PIPERACILLIN SODIUM\TAZOBACTAM SODIUM
     Indication: ANTIBIOTIC THERAPY
     Dosage: 900 MG, THRICE DAILY (900 MG/8H)
     Route: 042
     Dates: start: 20190906, end: 20190916
  14. ARA-C [Concomitant]
     Active Substance: CYTARABINE
     Dosage: 30 MG, TWICE DAILY (30 MG/12H)
     Route: 065
     Dates: start: 20190909, end: 20190914
  15. METHOTREXATE (METHOTREXATE SODIUM) [Concomitant]
     Active Substance: METHOTREXATE SODIUM
     Indication: CHEMOTHERAPY
     Route: 037
     Dates: start: 20190907
  16. MERONEM [Concomitant]
     Active Substance: MEROPENEM
     Indication: ANTIBIOTIC THERAPY
     Dosage: 400 MG, THRICE DAILY (400 MG/8H)
     Route: 042
     Dates: start: 20190917, end: 20190927
  17. ARA-C [Concomitant]
     Active Substance: CYTARABINE
     Route: 065
     Dates: start: 20190907, end: 20190908
  18. ARA-C [Concomitant]
     Active Substance: CYTARABINE
     Route: 037
     Dates: start: 20190913
  19. FUROSEMID                          /00032601/ [Concomitant]
     Active Substance: FUROSEMIDE
     Indication: SUPPORTIVE CARE
     Route: 065
     Dates: start: 20190907, end: 20190908
  20. PANTOPRAZOL [Concomitant]
     Active Substance: PANTOPRAZOLE SODIUM
     Indication: SUPPORTIVE CARE
     Route: 042
     Dates: start: 20190918
  21. CLEMASTINE [Concomitant]
     Active Substance: CLEMASTINE
     Indication: SUPPORTIVE CARE
     Dosage: 0.2 ML, UNKNOWN FREQ.
     Route: 065
     Dates: start: 20190915

REACTIONS (4)
  - Pseudomonal sepsis [Fatal]
  - Candida sepsis [Fatal]
  - Neutropenic colitis [Not Recovered/Not Resolved]
  - Off label use [Unknown]

NARRATIVE: CASE EVENT DATE: 20190917
